FAERS Safety Report 17436208 (Version 1)
Quarter: 2020Q1

REPORT INFORMATION
  Report Type: Spontaneous
  Country: IL (occurrence: IL)
  Receive Date: 20200219
  Receipt Date: 20200219
  Transmission Date: 20200409
  Serious: Yes (Other)
  Sender: FDA-Public Use
  Company Number: IL-GILEAD-2020-0450725

PATIENT
  Age: 24 Year
  Sex: Female

DRUGS (2)
  1. TRUVADA [Suspect]
     Active Substance: EMTRICITABINE\TENOFOVIR DISOPROXIL FUMARATE
     Indication: HIV INFECTION
     Dosage: UNK
     Route: 065
     Dates: start: 201801
  2. DOLUTEGRAVIR [Concomitant]
     Active Substance: DOLUTEGRAVIR

REACTIONS (8)
  - Cushing^s syndrome [Unknown]
  - VIth nerve paralysis [Unknown]
  - Strabismus [Unknown]
  - IIIrd nerve paralysis [Unknown]
  - Vision blurred [Unknown]
  - Intracranial pressure increased [Unknown]
  - Diplopia [Unknown]
  - Meningitis [Unknown]
